FAERS Safety Report 5228876-9 (Version None)
Quarter: 2007Q1

REPORT INFORMATION
  Report Type: 
  Country: None (occurrence: None)
  Receive Date: 20070205
  Receipt Date: 20070126
  Transmission Date: 20070707
  Serious: Yes (Other)
  Sender: FDA-Public Use
  Company Number: CH-ROCHE-480211

PATIENT
  Age: 57 Year
  Sex: Female

DRUGS (2)
  1. PEGASYS [Suspect]
     Indication: HEPATITIS C
     Route: 051
     Dates: start: 20060615, end: 20060615
  2. COPEGUS [Suspect]
     Indication: HEPATITIS C
     Route: 048
     Dates: start: 20060615, end: 20060615

REACTIONS (2)
  - DENTAL CARIES [None]
  - DRY MOUTH [None]
